FAERS Safety Report 9310016 (Version 2)
Quarter: 2013Q2

REPORT INFORMATION
  Report Type: Report from Study
  Country: US (occurrence: US)
  Receive Date: 20130527
  Receipt Date: 20130627
  Transmission Date: 20140414
  Serious: Yes (Hospitalization)
  Sender: FDA-Public Use
  Company Number: US-BIOGENIDEC-2013BI043896

PATIENT
  Age: 41 Year
  Sex: Male
  Weight: 116 kg

DRUGS (11)
  1. TYSABRI [Suspect]
     Indication: MULTIPLE SCLEROSIS
     Route: 042
     Dates: start: 20091005
  2. ZANAFLEX [Concomitant]
     Indication: MUSCLE SPASTICITY
  3. BACLOFEN [Concomitant]
     Indication: MUSCLE SPASTICITY
  4. CYMBALTA [Concomitant]
     Indication: DEPRESSION
  5. HYDROCHLOROTHIAZIDE [Concomitant]
     Indication: HYPERTENSION
  6. INDERAL [Concomitant]
     Indication: HYPERTENSION
  7. SULFASALAZINE [Concomitant]
     Indication: GASTROINTESTINAL DISORDER
  8. EXCEDRINE [Concomitant]
     Indication: HEADACHE
  9. MELATONIN [Concomitant]
     Indication: SLEEP PHASE RHYTHM DISTURBANCE
  10. MULTIVITAMIN [Concomitant]
     Indication: ROUTINE HEALTH MAINTENANCE
  11. NEXIUM [Concomitant]
     Indication: ROUTINE HEALTH MAINTENANCE

REACTIONS (2)
  - Fibula fracture [Recovered/Resolved]
  - Wrist fracture [Recovered/Resolved]
